FAERS Safety Report 20506071 (Version 1)
Quarter: 2022Q1

REPORT INFORMATION
  Report Type: Spontaneous
  Country: US (occurrence: None)
  Receive Date: 20220221
  Receipt Date: 20220221
  Transmission Date: 20220423
  Serious: Yes (Other)
  Sender: FDA-Public Use
  Company Number: None

PATIENT
  Age: 41 Year
  Sex: Female
  Weight: 109.6 kg

DRUGS (7)
  1. INFED [Suspect]
     Active Substance: IRON DEXTRAN
     Indication: Iron deficiency anaemia
     Dosage: OTHER FREQUENCY : ONCE;?
     Route: 041
     Dates: start: 20220211, end: 20220211
  2. Cholecalciferol 1,250mcg once weekly [Concomitant]
  3. levothyroxine 200mcg once daily [Concomitant]
  4. Azelastine 137mcg as directed [Concomitant]
  5. cyclobenzaprine 10mg once daily [Concomitant]
  6. Claritin 10mg once daily [Concomitant]
  7. Meclizine 25mg once daily [Concomitant]

REACTIONS (6)
  - Infusion related reaction [None]
  - Dysgeusia [None]
  - Chest discomfort [None]
  - Back pain [None]
  - Dyspnoea [None]
  - Therapy cessation [None]

NARRATIVE: CASE EVENT DATE: 20220211
